FAERS Safety Report 4451699-5 (Version None)
Quarter: 2004Q3

REPORT INFORMATION
  Report Type: 
  Country: None (occurrence: None)
  Receive Date: 20040916
  Receipt Date: 20040706
  Transmission Date: 20050211
  Serious: Yes (Life-Threatening, Hospitalization, Disabling)
  Sender: FDA-Public Use
  Company Number: US-MERCK-0407USA00538

PATIENT
  Age: 73 Year
  Sex: Female
  Weight: 87 kg

DRUGS (5)
  1. TYLENOL [Concomitant]
     Route: 065
  2. LIPITOR [Concomitant]
     Route: 048
  3. TUMS [Concomitant]
     Route: 065
  4. PROVERA [Concomitant]
     Route: 065
  5. VIOXX [Suspect]
     Indication: ARTHRITIS
     Route: 048
     Dates: start: 20040526, end: 20040628

REACTIONS (2)
  - CARDIAC FAILURE CONGESTIVE [None]
  - PLEURAL EFFUSION [None]
